FAERS Safety Report 7187311-4 (Version None)
Quarter: 2010Q4

REPORT INFORMATION
  Report Type: 
  Country: None (occurrence: None)
  Receive Date: 20101222
  Receipt Date: 20101213
  Transmission Date: 20110411
  Serious: Yes (Hospitalization)
  Sender: FDA-Public Use
  Company Number: DE-ELI_LILLY_AND_COMPANY-DE201012005147

PATIENT
  Age: 61 Year
  Sex: Male
  Weight: 88 kg

DRUGS (8)
  1. EFFIENT [Suspect]
     Indication: CARDIAC DISORDER
     Dosage: 60 MG, UNK
     Dates: start: 20100726
  2. EFFIENT [Suspect]
     Dosage: 10 MG, DAILY (1/D)
     Route: 048
     Dates: start: 20100727
  3. SIMVASTATIN [Concomitant]
     Indication: HYPERCHOLESTEROLAEMIA
     Dosage: 20 MG, UNK
     Dates: start: 20100625
  4. METOPROLOL SUCCINATE [Concomitant]
     Indication: CARDIAC DISORDER
     Dosage: 95 MG, UNK
     Dates: start: 20100626
  5. RAMIPRIL [Concomitant]
     Indication: CARDIAC DISORDER
     Dosage: 2.5 MG, UNK
     Dates: start: 20100626
  6. ASPIRIN [Concomitant]
     Indication: CARDIAC DISORDER
     Dosage: 100 MG, UNK
     Dates: start: 20100626
  7. ALLOPURINOL [Concomitant]
     Indication: HYPERURICAEMIA
     Dosage: 300 MG, UNK
     Dates: start: 20070701
  8. PANTOZOL [Concomitant]
     Indication: REFLUX OESOPHAGITIS
     Dosage: 40 MG, UNK
     Dates: start: 20050101

REACTIONS (1)
  - MYOCARDIAL ISCHAEMIA [None]
